FAERS Safety Report 8135920-8 (Version None)
Quarter: 2012Q1

REPORT INFORMATION
  Report Type: 
  Country: None (occurrence: None)
  Receive Date: 20120210
  Receipt Date: 20120203
  Transmission Date: 20120608
  Serious: Yes (Hospitalization, Other)
  Sender: FDA-Public Use
  Company Number: 2011SP001281

PATIENT
  Age: 43 Year
  Sex: Female

DRUGS (9)
  1. MIRTAZAPINE [Concomitant]
  2. LYRICA [Concomitant]
  3. NUVARING [Suspect]
     Indication: MENSTRUAL DISORDER
     Dosage: ; VAG
     Route: 067
     Dates: start: 20080724, end: 20080905
  4. NUVARING [Suspect]
     Indication: CONTRACEPTION
     Dosage: ; VAG
     Route: 067
     Dates: start: 20080724, end: 20080905
  5. PROPRANOLOL [Concomitant]
  6. DIAZEPAM [Concomitant]
  7. ZYPREXA [Concomitant]
  8. SEROQUEL [Concomitant]
  9. LEVOTHYROXINE SODIUM [Concomitant]

REACTIONS (19)
  - PLANTAR FASCIITIS [None]
  - BLOOD CHOLESTEROL INCREASED [None]
  - ANXIETY [None]
  - HYPERCOAGULATION [None]
  - PNEUMONIA [None]
  - DIABETES MELLITUS [None]
  - PULMONARY EMBOLISM [None]
  - MENTAL DISORDER [None]
  - MENISCUS LESION [None]
  - LIGAMENT RUPTURE [None]
  - SYNOVITIS [None]
  - MYOCARDIAL ISCHAEMIA [None]
  - MYOCARDIAL INFARCTION [None]
  - BARTHOLIN'S CYST [None]
  - PSORIASIS [None]
  - OEDEMA PERIPHERAL [None]
  - HEPATIC STEATOSIS [None]
  - DEPRESSION [None]
  - IRRITABLE BOWEL SYNDROME [None]
